FAERS Safety Report 13375801 (Version 2)
Quarter: 2017Q2

REPORT INFORMATION
  Report Type: Report from Study
  Country: GB (occurrence: GB)
  Receive Date: 20170328
  Receipt Date: 20170418
  Transmission Date: 20170830
  Serious: Yes (Hospitalization, Other)
  Sender: FDA-Public Use
  Company Number: GB-AMGEN-GBRSL2017046283

PATIENT
  Age: 92 Year
  Sex: Female

DRUGS (1)
  1. ARANESP [Suspect]
     Active Substance: DARBEPOETIN ALFA
     Indication: PRODUCT USED FOR UNKNOWN INDICATION
     Dosage: 10 MUG, UNK
     Route: 065

REACTIONS (7)
  - Loss of personal independence in daily activities [Unknown]
  - Fall [Unknown]
  - Chest pain [Unknown]
  - Memory impairment [Not Recovered/Not Resolved]
  - Wrist fracture [Unknown]
  - Drug dose omission [Unknown]
  - Confusional state [Unknown]

NARRATIVE: CASE EVENT DATE: 20170223
